FAERS Safety Report 14467528 (Version 2)
Quarter: 2018Q1

REPORT INFORMATION
  Report Type: Spontaneous
  Country: US (occurrence: US)
  Receive Date: 20180131
  Receipt Date: 20180326
  Transmission Date: 20180509
  Serious: No
  Sender: FDA-Public Use
  Company Number: US-LUNDBECK-DKLU2039094

PATIENT
  Age: 48 Year
  Sex: Female

DRUGS (3)
  1. NORTHERA [Suspect]
     Active Substance: DROXIDOPA
     Route: 048
     Dates: start: 201707
  2. NORTHERA [Suspect]
     Active Substance: DROXIDOPA
     Dosage: TITRATION COMPLETE
     Route: 048
     Dates: start: 201707
  3. NORTHERA [Suspect]
     Active Substance: DROXIDOPA
     Indication: PRODUCT USED FOR UNKNOWN INDICATION
     Dosage: SCHEDULE C.
     Route: 048
     Dates: start: 201707

REACTIONS (10)
  - Sinus tachycardia [Unknown]
  - Fatigue [Unknown]
  - Palpitations [Unknown]
  - Drug dose omission [Unknown]
  - Dyspnoea [Unknown]
  - Dysphonia [Unknown]
  - Blood pressure decreased [Unknown]
  - Headache [Unknown]
  - Syncope [Unknown]
  - Dizziness [Unknown]

NARRATIVE: CASE EVENT DATE: 20171017
